FAERS Safety Report 24651748 (Version 1)
Quarter: 2024Q4

REPORT INFORMATION
  Report Type: Spontaneous
  Country: AU (occurrence: AU)
  Receive Date: 20241122
  Receipt Date: 20241122
  Transmission Date: 20250115
  Serious: Yes (Hospitalization, Other)
  Sender: MSN LABORATORIES PRIVATE LIMITED
  Company Number: AU-MSNLABS-2024MSNLIT02527

PATIENT

DRUGS (4)
  1. PACLITAXEL [Suspect]
     Active Substance: PACLITAXEL
     Indication: Non-small cell lung cancer metastatic
     Route: 065
  2. CARBOPLATIN [Suspect]
     Active Substance: CARBOPLATIN
     Indication: Non-small cell lung cancer metastatic
     Route: 065
  3. ATEZOLIZUMAB [Suspect]
     Active Substance: ATEZOLIZUMAB
     Indication: Non-small cell lung cancer metastatic
     Route: 065
  4. BEVACIZUMAB [Suspect]
     Active Substance: BEVACIZUMAB
     Indication: Non-small cell lung cancer metastatic
     Route: 065

REACTIONS (2)
  - Cytokine release syndrome [Recovered/Resolved]
  - Haemophagocytic lymphohistiocytosis [Recovered/Resolved]
